FAERS Safety Report 22639721 (Version 1)
Quarter: 2023Q2

REPORT INFORMATION
  Report Type: Spontaneous
  Country: IT (occurrence: IT)
  Receive Date: 20230626
  Receipt Date: 20230626
  Transmission Date: 20230721
  Serious: Yes (Other)
  Sender: FDA-Public Use
  Company Number: None

PATIENT
  Age: 78 Year
  Sex: Female
  Weight: 71 kg

DRUGS (1)
  1. KISQALI [Suspect]
     Active Substance: RIBOCICLIB
     Indication: Breast cancer recurrent
     Dosage: 600 MG, QD (PER 21 GIORNI OGNI 21 GIORNI)
     Route: 048
     Dates: start: 20221011, end: 20230426

REACTIONS (1)
  - Skin necrosis [Recovering/Resolving]

NARRATIVE: CASE EVENT DATE: 20230228
